FAERS Safety Report 7752965 (Version 6)
Quarter: 2014Q4

REPORT INFORMATION
  Report Type: Report from Study
  Country: US (occurrence: US)
  Receive Date: 20110110
  Receipt Date: 20141114
  Transmission Date: 20150529
  Serious: Yes (Hospitalization)
  Sender: FDA-Public Use
  Company Number: US-BIOGENIDEC-2010BI045266

PATIENT
  Age: 52 Year
  Sex: Female
  Weight: 102 kg

DRUGS (1)
  1. TYSABRI [Suspect]
     Active Substance: NATALIZUMAB
     Indication: MULTIPLE SCLEROSIS
     Route: 042
     Dates: start: 20090903, end: 20110714

REACTIONS (16)
  - Osteonecrosis [Recovered/Resolved]
  - Weight increased [Not Recovered/Not Resolved]
  - Post procedural complication [Recovered/Resolved]
  - Urinary tract infection [Recovered/Resolved]
  - Infusion site pruritus [Recovered/Resolved]
  - Anaemia [Recovered/Resolved]
  - Loss of control of legs [Not Recovered/Not Resolved]
  - Mobility decreased [Unknown]
  - Abasia [Not Recovered/Not Resolved]
  - Musculoskeletal pain [Not Recovered/Not Resolved]
  - Crying [Recovered/Resolved]
  - Urinary incontinence [Recovered/Resolved]
  - Muscle spasticity [Not Recovered/Not Resolved]
  - Hypersensitivity [Recovered/Resolved]
  - Somnolence [Recovered/Resolved]
  - Fatigue [Recovered/Resolved]

NARRATIVE: CASE EVENT DATE: 20090904
